FAERS Safety Report 12312147 (Version 1)
Quarter: 2016Q2

REPORT INFORMATION
  Report Type: Spontaneous
  Country: US (occurrence: US)
  Receive Date: 20160427
  Receipt Date: 20160427
  Transmission Date: 20160815
  Serious: Yes (Other)
  Sender: FDA-Public Use
  Company Number: US-BRISTOL-MYERS SQUIBB COMPANY-BMS-2016-031227

PATIENT
  Age: 58 Year
  Sex: Male

DRUGS (1)
  1. OPDIVO [Suspect]
     Active Substance: NIVOLUMAB
     Indication: METASTATIC MALIGNANT MELANOMA
     Dosage: 40 MG, UNK, 77 MG  TOTAL
     Route: 065

REACTIONS (7)
  - Anxiety [Unknown]
  - Cold sweat [Unknown]
  - Chest discomfort [Recovered/Resolved]
  - Nausea [Unknown]
  - Fatigue [Unknown]
  - Diarrhoea [Unknown]
  - Vomiting [Recovering/Resolving]

NARRATIVE: CASE EVENT DATE: 20160419
